FAERS Safety Report 8937236 (Version 1)
Quarter: 2012Q4

REPORT INFORMATION
  Report Type: Spontaneous
  Country: US (occurrence: None)
  Receive Date: 20121128
  Receipt Date: 20121128
  Transmission Date: 20130627
  Serious: Yes (Disabling, Other)
  Sender: FDA-Public Use
  Company Number: None

PATIENT
  Age: 30 Year
  Sex: Female
  Weight: 65.77 kg

DRUGS (1)
  1. RISPERDAL [Suspect]
     Dosage: 20mg monthly IM
     Route: 030
     Dates: start: 20100120, end: 20100520

REACTIONS (1)
  - Unevaluable event [None]
